FAERS Safety Report 7318555-6 (Version None)
Quarter: 2011Q1

REPORT INFORMATION
  Report Type: 
  Country: None (occurrence: None)
  Receive Date: 20110228
  Receipt Date: 20110221
  Transmission Date: 20110831
  Serious: Yes (Hospitalization)
  Sender: FDA-Public Use
  Company Number: US-B.I. PHARMACEUTICALS,INC./RIDGEFIELD-2010-BP-12282BP

PATIENT
  Sex: Female

DRUGS (14)
  1. ZOCOR [Concomitant]
  2. SPIRIVA [Suspect]
     Indication: PULMONARY FIBROSIS
     Dosage: 18 MCG
     Route: 055
     Dates: start: 20050101
  3. PLENDIL [Concomitant]
  4. NEURONTIN [Concomitant]
  5. PEDNISON [Concomitant]
  6. PLIVA [Concomitant]
  7. OXYGEN [Concomitant]
  8. SYNTHROID [Concomitant]
  9. MECLIZINE [Concomitant]
  10. SYMBICORT [Concomitant]
  11. DURAGESIC-50 [Concomitant]
     Indication: ARTHRALGIA
  12. VITAMIN D [Concomitant]
     Dosage: 50000 U
  13. NEBULIZER [Concomitant]
  14. XALATAN [Concomitant]
     Indication: GLAUCOMA
     Route: 031

REACTIONS (1)
  - PNEUMONIA [None]
